FAERS Safety Report 11139607 (Version 2)
Quarter: 2015Q3

REPORT INFORMATION
  Report Type: Spontaneous
  Country: US (occurrence: US)
  Receive Date: 20150527
  Receipt Date: 20150929
  Transmission Date: 20151125
  Serious: Yes (Hospitalization, Other)
  Sender: FDA-Public Use
  Company Number: US-BAYER-2015-262670

PATIENT
  Age: 24 Year
  Sex: Female
  Weight: 49.89 kg

DRUGS (1)
  1. MIRENA [Suspect]
     Active Substance: LEVONORGESTREL
     Indication: CONTRACEPTION
     Dosage: 20 MCG/24HR, CONT
     Route: 015
     Dates: start: 20110115, end: 20120727

REACTIONS (10)
  - Uterine perforation [None]
  - Pain [None]
  - Device failure [None]
  - General physical health deterioration [None]
  - Injury [None]
  - Intra-uterine contraceptive device removal [None]
  - Anxiety [Not Recovered/Not Resolved]
  - Device issue [None]
  - Emotional distress [Not Recovered/Not Resolved]
  - Fear [Not Recovered/Not Resolved]

NARRATIVE: CASE EVENT DATE: 201207
